APPROVED DRUG PRODUCT: TEEBACIN
Active Ingredient: AMINOSALICYLATE SODIUM
Strength: 500MG
Dosage Form/Route: TABLET;ORAL
Application: N007320 | Product #002
Applicant: CONSOLIDATED MIDLAND CORP
Approved: Approved Prior to Jan 1, 1982 | RLD: No | RS: No | Type: DISCN